FAERS Safety Report 6820418-7 (Version None)
Quarter: 2010Q3

REPORT INFORMATION
  Report Type: 
  Country: None (occurrence: None)
  Receive Date: 20100707
  Receipt Date: 20100628
  Transmission Date: 20110219
  Serious: Yes (Hospitalization)
  Sender: FDA-Public Use
  Company Number: SE-ROCHE-711827

PATIENT
  Age: 61 Year
  Sex: Female

DRUGS (2)
  1. ROACTEMRA [Suspect]
     Indication: RHEUMATOID ARTHRITIS
     Dosage: DOSAGE FORM: INFUSION.
     Route: 042
     Dates: start: 20091221, end: 20100120
  2. PREDNISOLON [Concomitant]
     Indication: UNEVALUABLE EVENT

REACTIONS (1)
  - PALPITATIONS [None]
